FAERS Safety Report 5412712-1 (Version None)
Quarter: 2007Q3

REPORT INFORMATION
  Report Type: 
  Country: None (occurrence: None)
  Receive Date: 20070813
  Receipt Date: 20070803
  Transmission Date: 20080115
  Serious: Yes (Hospitalization)
  Sender: FDA-Public Use
  Company Number: US-SHR-US-2007-028857

PATIENT
  Age: 59 Year
  Sex: Male

DRUGS (1)
  1. BETASERON [Suspect]
     Indication: RELAPSING-REMITTING MULTIPLE SCLEROSIS
     Dosage: 8 MIU, EVERY 2D
     Route: 058
     Dates: start: 19990202

REACTIONS (5)
  - CHEST PAIN [None]
  - INJECTION SITE RASH [None]
  - MULTIPLE SCLEROSIS [None]
  - PAIN IN JAW [None]
  - URINARY TRACT INFECTION [None]
